FAERS Safety Report 25506929 (Version 1)
Quarter: 2025Q3

REPORT INFORMATION
  Report Type: Spontaneous
  Country: US (occurrence: US)
  Receive Date: 20250702
  Receipt Date: 20250702
  Transmission Date: 20251021
  Serious: Yes (Other)
  Sender: MERCK SHARP & DOHME LLC
  Company Number: US-009507513-2300536

PATIENT
  Sex: Female

DRUGS (4)
  1. KEYTRUDA [Suspect]
     Active Substance: PEMBROLIZUMAB
     Indication: Endometrial cancer
     Dosage: 200MG EVERY 3 WEEKS
     Route: 065
     Dates: start: 20241202, end: 20241202
  2. KEYTRUDA [Suspect]
     Active Substance: PEMBROLIZUMAB
     Indication: Endometrial cancer
     Dosage: 200MG EVERY 3 WEEKS
     Route: 065
     Dates: start: 20250609, end: 20250609
  3. MOTRIN [Concomitant]
     Active Substance: IBUPROFEN
     Indication: Pain
  4. TYLENOL [Concomitant]
     Active Substance: ACETAMINOPHEN
     Indication: Pain

REACTIONS (8)
  - Malignant neoplasm progression [Unknown]
  - Headache [Unknown]
  - Pruritus [Unknown]
  - Lymphadenopathy [Unknown]
  - Neutrophil count increased [Unknown]
  - COVID-19 [Recovered/Resolved]
  - Infection [Unknown]
  - Fatigue [Unknown]

NARRATIVE: CASE EVENT DATE: 20250101
